FAERS Safety Report 16990615 (Version 4)
Quarter: 2020Q1

REPORT INFORMATION
  Report Type: Report from Study
  Country: US (occurrence: US)
  Receive Date: 20191104
  Receipt Date: 20200220
  Transmission Date: 20200409
  Serious: Yes (Hospitalization, Other)
  Sender: FDA-Public Use
  Company Number: US-GLAXOSMITHKLINE-US2019TSO167615

PATIENT
  Age: 66 Year
  Sex: Female
  Weight: 94 kg

DRUGS (8)
  1. NIRAPARIB [Suspect]
     Active Substance: NIRAPARIB
     Indication: OVARIAN CANCER
     Dosage: 200 MG, DAILY AT 8PM WITHOUT FOOD
     Dates: start: 20190905, end: 20191002
  2. NIRAPARIB [Suspect]
     Active Substance: NIRAPARIB
     Dosage: 200 MG, QD
     Route: 048
     Dates: start: 20191011
  3. NIRAPARIB [Suspect]
     Active Substance: NIRAPARIB
     Dosage: 200 MG, AT 8PM WITHOUT FOOD
     Route: 048
  4. NIRAPARIB [Suspect]
     Active Substance: NIRAPARIB
     Dosage: 200 MG, QD
     Dates: end: 20200122
  5. SENNA [Concomitant]
     Active Substance: SENNA LEAF\SENNOSIDES\SENNOSIDES A AND B
     Indication: PRODUCT USED FOR UNKNOWN INDICATION
     Dosage: UNK
  6. NIRAPARIB [Suspect]
     Active Substance: NIRAPARIB
     Dosage: 100 MG, QD
     Route: 048
  7. NIRAPARIB [Suspect]
     Active Substance: NIRAPARIB
     Dosage: 100 MG, QD
     Route: 048
     Dates: start: 20200111
  8. MIRALAX [Concomitant]
     Active Substance: POLYETHYLENE GLYCOL 3350
     Indication: PRODUCT USED FOR UNKNOWN INDICATION
     Dosage: UNK

REACTIONS (16)
  - Abdominal pain upper [Recovered/Resolved]
  - Carbohydrate antigen 125 increased [Recovered/Resolved]
  - Blood pressure increased [Recovered/Resolved]
  - Recurrent cancer [Unknown]
  - Feeling abnormal [Unknown]
  - Product dose omission [Unknown]
  - Neoplasm malignant [Unknown]
  - Vomiting [Recovered/Resolved]
  - Small intestinal obstruction [Unknown]
  - Cognitive disorder [Unknown]
  - Headache [Not Recovered/Not Resolved]
  - Dizziness [Not Recovered/Not Resolved]
  - Underdose [Unknown]
  - Heart rate increased [Not Recovered/Not Resolved]
  - Inflammation [Unknown]
  - Faeces discoloured [Unknown]

NARRATIVE: CASE EVENT DATE: 2019
